FAERS Safety Report 7780687-6 (Version None)
Quarter: 2011Q3

REPORT INFORMATION
  Report Type: 
  Country: None (occurrence: None)
  Receive Date: 20110927
  Receipt Date: 20110406
  Transmission Date: 20111222
  Serious: No
  Sender: FDA-Public Use
  Company Number: US-BRISTOL-MYERS SQUIBB COMPANY-15625510

PATIENT
  Age: 70 Year
  Sex: Female
  Weight: 79 kg

DRUGS (4)
  1. HYDROCHLOROTHIAZIDE [Suspect]
     Indication: HYPERTENSION
     Dates: start: 20110307
  2. HYDROCHLOROTHIAZIDE [Suspect]
     Indication: CARDIAC DISORDER
     Dates: start: 20110307
  3. AVAPRO [Suspect]
     Indication: CARDIAC DISORDER
     Dates: start: 20110307
  4. AVAPRO [Suspect]
     Indication: HYPERTENSION
     Dates: start: 20110307

REACTIONS (3)
  - RASH [None]
  - PRURITUS [None]
  - SKIN EXFOLIATION [None]
